FAERS Safety Report 7588889-9 (Version None)
Quarter: 2011Q3

REPORT INFORMATION
  Report Type: 
  Country: None (occurrence: None)
  Receive Date: 20110705
  Receipt Date: 20110624
  Transmission Date: 20111222
  Serious: Yes (Other)
  Sender: FDA-Public Use
  Company Number: US-JNJFOC-20110406979

PATIENT
  Sex: Female
  Weight: 70.31 kg

DRUGS (9)
  1. DURAGESIC-100 [Suspect]
     Indication: FIBROMYALGIA
     Route: 062
     Dates: start: 20010101, end: 20090101
  2. PRILOSEC [Concomitant]
     Indication: IRRITABLE BOWEL SYNDROME
     Route: 048
     Dates: start: 19910101
  3. VALIUM [Concomitant]
     Indication: FIBROMYALGIA
     Route: 048
     Dates: start: 19910101
  4. SKELAXIN [Concomitant]
     Indication: MUSCLE SPASMS
     Route: 048
     Dates: start: 19910101
  5. ULTRAM [Concomitant]
     Indication: BREAKTHROUGH PAIN
     Route: 048
     Dates: start: 19910101
  6. FLEXERIL [Concomitant]
     Indication: MUSCLE RELAXANT THERAPY
     Route: 048
     Dates: start: 19910101
  7. DURAGESIC-100 [Suspect]
     Route: 062
     Dates: start: 20090101
  8. MELATONIN [Concomitant]
     Indication: SLEEP DISORDER
     Route: 048
     Dates: start: 20000101
  9. FENTANYL CITRATE [Suspect]
     Indication: FIBROMYALGIA
     Route: 062
     Dates: start: 20090101, end: 20090101

REACTIONS (6)
  - POLYCHONDRITIS [None]
  - WEIGHT DECREASED [None]
  - PAIN [None]
  - FOLATE DEFICIENCY [None]
  - WEIGHT INCREASED [None]
  - PRODUCT ADHESION ISSUE [None]
